FAERS Safety Report 5927338-0 (Version None)
Quarter: 2008Q4

REPORT INFORMATION
  Report Type: 
  Country: None (occurrence: None)
  Receive Date: 20081021
  Receipt Date: 20081008
  Transmission Date: 20090506
  Serious: Yes (Other)
  Sender: FDA-Public Use
  Company Number: CHPA2008US17658

PATIENT
  Age: 15 Month
  Sex: Male
  Weight: 11.8 kg

DRUGS (1)
  1. GAS-X INFANT DROPS(NCH)(SIMETHICONE)DROPS [Suspect]
     Indication: FLATULENCE
     Dosage: 0.6 ML, QD, ORAL
     Route: 048

REACTIONS (1)
  - FLOUR SENSITIVITY [None]
